FAERS Safety Report 11875126 (Version 1)
Quarter: 2015Q4

REPORT INFORMATION
  Report Type: Spontaneous
  Country: US (occurrence: None)
  Receive Date: 20151228
  Receipt Date: 20151228
  Transmission Date: 20160305
  Serious: No
  Sender: FDA-Public Use
  Company Number: None

PATIENT
  Age: 31 Year
  Sex: Male
  Weight: 97.52 kg

DRUGS (2)
  1. CITALOPRAM [Suspect]
     Active Substance: CITALOPRAM HYDROBROMIDE
     Indication: DEPRESSION
     Route: 048
     Dates: start: 20151216, end: 20151217
  2. CITALOPRAM [Suspect]
     Active Substance: CITALOPRAM HYDROBROMIDE
     Indication: ANXIETY
     Route: 048
     Dates: start: 20151216, end: 20151217

REACTIONS (6)
  - Somnolence [None]
  - Condition aggravated [None]
  - Neuralgia [None]
  - Balance disorder [None]
  - Sedation [None]
  - Intentional product use issue [None]

NARRATIVE: CASE EVENT DATE: 20151223
